FAERS Safety Report 13705646 (Version 3)
Quarter: 2017Q3

REPORT INFORMATION
  Report Type: Spontaneous
  Country: DK (occurrence: DK)
  Receive Date: 20170630
  Receipt Date: 20170718
  Transmission Date: 20171127
  Serious: Yes (Disabling)
  Sender: FDA-Public Use
  Company Number: DK-TEVA-780596ACC

PATIENT
  Age: 65 Year
  Sex: Female
  Weight: 80 kg

DRUGS (1)
  1. LITAREX [Suspect]
     Active Substance: LITHIUM CITRATE
     Indication: BIPOLAR DISORDER
     Dosage: 16 DOSAGE FORMS DAILY; STRENGTH: 6 MMOL. DOSAGE: 4 TABLETS DAILY.
     Route: 048
     Dates: start: 1971, end: 2017

REACTIONS (2)
  - Tremor [Not Recovered/Not Resolved]
  - Gait disturbance [Not Recovered/Not Resolved]

NARRATIVE: CASE EVENT DATE: 20110302
